FAERS Safety Report 24927138 (Version 4)
Quarter: 2025Q1

REPORT INFORMATION
  Report Type: Spontaneous
  Country: JP (occurrence: JP)
  Receive Date: 20250205
  Receipt Date: 20250312
  Transmission Date: 20250409
  Serious: Yes (Other)
  Sender: CSL BEHRING
  Company Number: JP-BEH-2025194083

PATIENT

DRUGS (8)
  1. HUMAN C1-ESTERASE INHIBITOR [Suspect]
     Active Substance: HUMAN C1-ESTERASE INHIBITOR
     Indication: Product used for unknown indication
     Route: 064
  2. HUMAN C1-ESTERASE INHIBITOR [Suspect]
     Active Substance: HUMAN C1-ESTERASE INHIBITOR
     Indication: Product used for unknown indication
     Route: 064
  3. MORPHINE [Suspect]
     Active Substance: MORPHINE
     Route: 064
  4. ICATIBANT [Suspect]
     Active Substance: ICATIBANT ACETATE
     Route: 064
  5. LANADELUMAB [Suspect]
     Active Substance: LANADELUMAB
     Route: 064
  6. RISPERIDONE [Suspect]
     Active Substance: RISPERIDONE
     Route: 064
  7. PROPOFOL [Suspect]
     Active Substance: PROPOFOL
     Route: 064
  8. EPINEPHRINE [Suspect]
     Active Substance: EPINEPHRINE
     Route: 064

REACTIONS (5)
  - Mechanical ventilation [Unknown]
  - Drug withdrawal syndrome neonatal [Unknown]
  - Premature baby [Unknown]
  - Premature baby [Unknown]
  - Foetal exposure during pregnancy [Unknown]
